FAERS Safety Report 4940240-6 (Version None)
Quarter: 2006Q1

REPORT INFORMATION
  Report Type: 
  Country: None (occurrence: None)
  Receive Date: 20060310
  Receipt Date: 20060301
  Transmission Date: 20060701
  Serious: Yes (Hospitalization, Other)
  Sender: FDA-Public Use
  Company Number: US-MERCK-0603USA00453

PATIENT
  Age: 62 Year
  Sex: Male
  Weight: 73 kg

DRUGS (20)
  1. VIOXX [Suspect]
     Indication: BACK PAIN
     Route: 048
     Dates: start: 20011109, end: 20030203
  2. VICODIN [Concomitant]
     Route: 065
  3. METHADONE HYDROCHLORIDE [Concomitant]
     Route: 065
  4. ZITHROMAX [Concomitant]
     Route: 065
  5. MEDROL [Concomitant]
     Route: 065
  6. KEFLEX [Concomitant]
     Route: 065
  7. VICOPROFEN [Concomitant]
     Route: 065
  8. NULYTELY [Concomitant]
     Route: 065
  9. ATIVAN [Concomitant]
     Route: 065
  10. ENALAPRIL MALEATE [Concomitant]
     Route: 065
  11. TUSSIONEX (CHLORPHENIRAMINE POLISTIREX (+) HYDROCODONE POLISTIREX) [Concomitant]
     Route: 065
  12. PREDNISONE [Concomitant]
     Route: 065
  13. LEVAQUIN [Concomitant]
     Route: 065
  14. BACTRIM DS [Concomitant]
     Route: 065
  15. CLOBETASOL PROPIONATE [Concomitant]
     Route: 065
  16. ADVAIR DISKUS 100/50 [Concomitant]
     Route: 065
  17. ALBUTEROL [Concomitant]
     Route: 065
  18. SINGULAIR [Concomitant]
     Route: 065
  19. MOTRIN [Concomitant]
     Route: 065
  20. AZMACORT [Concomitant]
     Route: 065

REACTIONS (9)
  - ANGIOPATHY [None]
  - ANXIETY [None]
  - BACK DISORDER [None]
  - CARDIAC ARREST [None]
  - CARDIAC FAILURE [None]
  - HEART RATE IRREGULAR [None]
  - INFECTION [None]
  - LUNG DISORDER [None]
  - SURGERY [None]
